FAERS Safety Report 7709359-0 (Version None)
Quarter: 2011Q3

REPORT INFORMATION
  Report Type: 
  Country: None (occurrence: None)
  Receive Date: 20110819
  Receipt Date: 20110811
  Transmission Date: 20111222
  Serious: Yes (Other)
  Sender: FDA-Public Use
  Company Number: 2011SP038329

PATIENT
  Age: 60 Year
  Sex: Male
  Weight: 100 kg

DRUGS (9)
  1. VIRAFERONPEG [Concomitant]
  2. BOCEPREVIR (SCH-503034) [Suspect]
     Indication: HEPATITIS C
     Dates: start: 20110701
  3. ESIDRIX [Concomitant]
  4. VIRAFERONPEG [Suspect]
     Indication: HEPATITIS C
     Dosage: 150 MCG;QW;
  5. REBETOL [Concomitant]
  6. RIBAVIRIN [Concomitant]
  7. REBETOL [Suspect]
     Indication: HEPATITIS C
     Dosage: 1200 MG;QD;
  8. PEGASYS [Concomitant]
  9. CIALIS [Concomitant]

REACTIONS (6)
  - ANTINEUTROPHIL CYTOPLASMIC ANTIBODY INCREASED [None]
  - CONSTIPATION [None]
  - ILEUS PARALYTIC [None]
  - ABDOMINAL DISTENSION [None]
  - VITREOUS FLOATERS [None]
  - RETINAL HAEMORRHAGE [None]
